FAERS Safety Report 10570122 (Version 1)
Quarter: 2014Q4

REPORT INFORMATION
  Report Type: Spontaneous
  Country: US (occurrence: None)
  Receive Date: 20141106
  Receipt Date: 20141106
  Transmission Date: 20150529
  Serious: Yes (Hospitalization, Other)
  Sender: FDA-Public Use
  Company Number: None

PATIENT
  Age: 63 Year
  Sex: Male
  Weight: 72.58 kg

DRUGS (9)
  1. HYDROCODONE [Concomitant]
     Active Substance: HYDROCODONE
  2. PREDNISONE. [Concomitant]
     Active Substance: PREDNISONE
  3. METOPROLOL TARTRATE. [Concomitant]
     Active Substance: METOPROLOL TARTRATE
  4. AMLODIPINE BESYLATE 5MG TABLETS [Suspect]
     Active Substance: AMLODIPINE BESYLATE
     Indication: BLOOD PRESSURE
     Dosage: 5 MG, 2 TABLETS, 1 TAB A.M./1 TABE P.M., MOUTH
     Route: 048
     Dates: start: 20130715, end: 20141016
  5. CEPHALEXIN. [Concomitant]
     Active Substance: CEPHALEXIN
  6. COQ10 [Concomitant]
     Active Substance: UBIDECARENONE
  7. RAMIPRIL. [Concomitant]
     Active Substance: RAMIPRIL
  8. AZATHIOPRINE. [Concomitant]
     Active Substance: AZATHIOPRINE
  9. VITAMIN B-12 AND D3 [Concomitant]

REACTIONS (28)
  - Fatigue [None]
  - Dyspnoea [None]
  - Dizziness [None]
  - Balance disorder [None]
  - Rash erythematous [None]
  - Infection [None]
  - Blood creatinine increased [None]
  - Arthropathy [None]
  - Abasia [None]
  - Muscle spasms [None]
  - Chest pain [None]
  - Renal impairment [None]
  - Asthenia [None]
  - Pain in extremity [None]
  - Pruritus [None]
  - General physical health deterioration [None]
  - Musculoskeletal pain [None]
  - Blood pressure increased [None]
  - Vision blurred [None]
  - Headache [None]
  - Peripheral swelling [None]
  - Nausea [None]
  - Tremor [None]
  - Decreased appetite [None]
  - Hyperhidrosis [None]
  - Presyncope [None]
  - Gouty arthritis [None]
  - Cellulitis [None]

NARRATIVE: CASE EVENT DATE: 201410
